FAERS Safety Report 11888767 (Version 1)
Quarter: 2016Q1

REPORT INFORMATION
  Report Type: Spontaneous
  Country: US (occurrence: None)
  Receive Date: 20160104
  Receipt Date: 20160104
  Transmission Date: 20160526
  Serious: Yes (Life-Threatening, Hospitalization, Other)
  Sender: FDA-Public Use
  Company Number: None

PATIENT
  Age: 54 Year
  Sex: Female
  Weight: 63.5 kg

DRUGS (8)
  1. XANAX [Concomitant]
     Active Substance: ALPRAZOLAM
  2. AMBIEN CR [Concomitant]
     Active Substance: ZOLPIDEM TARTRATE
  3. LISINOPRIL. [Concomitant]
     Active Substance: LISINOPRIL
  4. LYRICA [Suspect]
     Active Substance: PREGABALIN
     Indication: PAIN
     Route: 048
     Dates: start: 20151210, end: 20151218
  5. OXYCODONE [Concomitant]
     Active Substance: OXYCODONE
  6. ROBAXIN [Concomitant]
     Active Substance: METHOCARBAMOL
  7. VITAMIN B12 [Concomitant]
     Active Substance: CYANOCOBALAMIN
  8. MULTI-VITAMIN [Concomitant]
     Active Substance: .ALPHA.-TOCOPHEROL ACETATE, DL-\ASCORBIC ACID\CYANOCOBALAMIN\FLUORIDE ION\FOLIC ACID\NIACIN\PYRIDOXINE\RIBOFLAVIN\THIAMINE\VITAMIN A\VITAMIN D

REACTIONS (15)
  - Anaemia [None]
  - Pyrexia [None]
  - Gait disturbance [None]
  - Myalgia [None]
  - Muscle spasms [None]
  - Cough [None]
  - Dystonia [None]
  - Acute kidney injury [None]
  - Fall [None]
  - Confusional state [None]
  - Musculoskeletal stiffness [None]
  - Rhabdomyolysis [None]
  - Electrolyte imbalance [None]
  - Chills [None]
  - Speech disorder [None]

NARRATIVE: CASE EVENT DATE: 20151222
